FAERS Safety Report 18429634 (Version 3)
Quarter: 2020Q4

REPORT INFORMATION
  Report Type: Spontaneous
  Country: BR (occurrence: BR)
  Receive Date: 20201026
  Receipt Date: 20201110
  Transmission Date: 20210114
  Serious: Yes (Hospitalization)
  Sender: FDA-Public Use
  Company Number: BR-B.I. PHARMACEUTICALS,INC./RIDGEFIELD-2020-BI-056167

PATIENT
  Sex: Male

DRUGS (1)
  1. OFEV [Suspect]
     Active Substance: NINTEDANIB
     Indication: IDIOPATHIC PULMONARY FIBROSIS

REACTIONS (7)
  - Haemolysis [Unknown]
  - Rash [Unknown]
  - Haemoglobin decreased [Unknown]
  - Infection [Unknown]
  - Diarrhoea [Unknown]
  - Haemorrhage [Unknown]
  - Anaemia [Unknown]
